FAERS Safety Report 15594229 (Version 2)
Quarter: 2019Q1

REPORT INFORMATION
  Report Type: Spontaneous
  Country: RU (occurrence: RU)
  Receive Date: 20181107
  Receipt Date: 20190301
  Transmission Date: 20190417
  Serious: Yes (Other)
  Sender: FDA-Public Use
  Company Number: RU-ARALEZ PHARMACEUTICALS R+D INC.-2018-ARA-002833

PATIENT
  Age: 59 Year
  Sex: Female
  Weight: 90 kg

DRUGS (7)
  1. METOPROLOL SUCCINATE. [Suspect]
     Active Substance: METOPROLOL SUCCINATE
     Indication: MYOCARDIAL INFARCTION
     Dosage: 50 MG DAILY
     Route: 048
     Dates: start: 20180901
  2. TAVEGIL                            /00137201/ [Concomitant]
     Active Substance: CLEMASTINE FUMARATE
  3. BRILINTA [Suspect]
     Active Substance: TICAGRELOR
     Indication: MYOCARDIAL INFARCTION
     Dosage: 90 MG BID
     Route: 048
     Dates: start: 20180901
  4. CARDIOMAGNYL [Concomitant]
     Active Substance: ASPIRIN\MAGNESIUM HYDROXIDE
  5. TRIMETAZIDINE [Concomitant]
     Active Substance: TRIMETAZIDINE
  6. PRESTARIUM                         /00790701/ [Concomitant]
     Active Substance: PERINDOPRIL
  7. ROSUVASTATIN. [Concomitant]
     Active Substance: ROSUVASTATIN

REACTIONS (2)
  - Dyspnoea [Recovered/Resolved]
  - Angioedema [Recovering/Resolving]

NARRATIVE: CASE EVENT DATE: 20180901
